FAERS Safety Report 21982038 (Version 2)
Quarter: 2023Q2

REPORT INFORMATION
  Report Type: Report from Study
  Country: NL (occurrence: NL)
  Receive Date: 20230213
  Receipt Date: 20230408
  Transmission Date: 20230722
  Serious: Yes (Hospitalization, Other)
  Sender: FDA-Public Use
  Company Number: NL-AMGEN-NLDSL2023021271

PATIENT
  Age: 82 Year
  Sex: Female

DRUGS (13)
  1. XGEVA [Suspect]
     Active Substance: DENOSUMAB
     Indication: Prophylaxis
     Dosage: 120 MILLIGRAM PER  1.7 MILLILITER, Q4WK
     Route: 058
  2. APIXABAN [Concomitant]
     Active Substance: APIXABAN
     Dosage: 2.5 MILLIGRAM, 2D 1T
  3. CALCIUM CARBONATE\CHOLECALCIFEROL [Concomitant]
     Active Substance: CALCIUM CARBONATE\CHOLECALCIFEROL
     Dosage: ,5G/880IE (1000MG CA) 1D1T
  4. CARBOMER [Concomitant]
     Active Substance: CARBOMER
     Dosage: 2 MILLIGRAM, TUBE 10G AS OFTEN AS NEEDED
  5. EXEMESTANE [Concomitant]
     Active Substance: EXEMESTANE
     Dosage: 25 MILLIGRAM, QD
  6. ISOSORBIDE MONONITRATE [Concomitant]
     Active Substance: ISOSORBIDE MONONITRATE
     Dosage: 30 MILLIGRAM, QD
  7. METOPROLOL [Concomitant]
     Active Substance: METOPROLOL
     Dosage: 50 MILLIGRAM, QD
  8. OMEPRAZOLE [Concomitant]
     Active Substance: OMEPRAZOLE
     Dosage: 20 MILLIGRAM, QD
  9. OXYCODONE [Concomitant]
     Active Substance: OXYCODONE
     Dosage: 5 MILLIGRAM, 4D 1T
  10. OXYCODONE [Concomitant]
     Active Substance: OXYCODONE
     Dosage: 5 MILLIGRAM, 2D 1T
  11. OXYCODONE [Concomitant]
     Active Substance: OXYCODONE
     Dosage: 20 MILLIGRAM, 2D 1T
  12. PREGABALIN [Concomitant]
     Active Substance: PREGABALIN
     Dosage: 75 MILLIGRAM, 2D 1C
  13. VITAMIN K [Concomitant]
     Active Substance: PHYTONADIONE

REACTIONS (2)
  - Osteitis [Unknown]
  - Angiopathy [Unknown]

NARRATIVE: CASE EVENT DATE: 20230130
